FAERS Safety Report 12183902 (Version 2)
Quarter: 2016Q2

REPORT INFORMATION
  Report Type: Spontaneous
  Country: DE (occurrence: DE)
  Receive Date: 20160316
  Receipt Date: 20160418
  Transmission Date: 20160815
  Serious: Yes (Other)
  Sender: FDA-Public Use
  Company Number: DE-SUN PHARMACEUTICAL INDUSTRIES LTD-2016R1-113075

PATIENT
  Age: 60 Year
  Sex: Female

DRUGS (2)
  1. QUETIAPINE. [Suspect]
     Active Substance: QUETIAPINE
     Indication: DEPRESSION
     Dosage: UNK
     Route: 048
     Dates: start: 2009
  2. VENLAFAXIN-NEURAXPHARM [Suspect]
     Active Substance: VENLAFAXINE HYDROCHLORIDE
     Indication: DEPRESSION
     Dosage: UNK
     Route: 048
     Dates: start: 2012

REACTIONS (23)
  - Loose tooth [Recovering/Resolving]
  - Potentiating drug interaction [Recovering/Resolving]
  - Abnormal dreams [Unknown]
  - Speech disorder [Unknown]
  - Dyspnoea [Recovered/Resolved]
  - Gait disturbance [Recovering/Resolving]
  - Abnormal weight gain [Recovering/Resolving]
  - Nasal congestion [Recovering/Resolving]
  - Peripheral swelling [Unknown]
  - Hyperhidrosis [Recovered/Resolved]
  - Palpitations [Unknown]
  - Breast engorgement [Unknown]
  - Anal incontinence [Recovered/Resolved]
  - Blood pressure increased [Unknown]
  - Urinary incontinence [Recovered/Resolved]
  - Heart rate increased [Recovering/Resolving]
  - Dry mouth [Unknown]
  - Heart rate irregular [Unknown]
  - Musculoskeletal stiffness [Recovering/Resolving]
  - Skin exfoliation [Unknown]
  - Pruritus [Recovering/Resolving]
  - Somnolence [Unknown]
  - Hypoaesthesia [Unknown]

NARRATIVE: CASE EVENT DATE: 2015
